FAERS Safety Report 16287529 (Version 1)
Quarter: 2019Q2

REPORT INFORMATION
  Report Type: Spontaneous
  Country: US (occurrence: US)
  Receive Date: 20190402
  Receipt Date: 20190402
  Transmission Date: 20190711
  Serious: No
  Sender: FDA-Public Use
  Company Number: None

PATIENT
  Age: 64 Year
  Sex: Male

DRUGS (6)
  1. TENOFOVIR DISOPROXIL FUMARA [Suspect]
     Active Substance: TENOFOVIR DISOPROXIL
     Indication: CHRONIC HEPATITIS C
     Route: 048
     Dates: start: 20190206
  2. LISINOPRIL. [Concomitant]
     Active Substance: LISINOPRIL
  3. SIMVASTATIN. [Concomitant]
     Active Substance: SIMVASTATIN
  4. TENOFOVIR DISOPROXIL FUMARA [Suspect]
     Active Substance: TENOFOVIR DISOPROXIL
     Indication: HEPATITIS C
     Route: 048
     Dates: start: 20190206
  5. JANUVIA [Concomitant]
     Active Substance: SITAGLIPTIN PHOSPHATE
  6. METFORMIN HCL [Concomitant]
     Active Substance: METFORMIN HYDROCHLORIDE

REACTIONS (1)
  - Bladder cancer [None]
